FAERS Safety Report 6490117-2 (Version None)
Quarter: 2009Q4

REPORT INFORMATION
  Report Type: 
  Country: None (occurrence: None)
  Receive Date: 20091211
  Receipt Date: 20090420
  Transmission Date: 20100525
  Serious: No
  Sender: FDA-Public Use
  Company Number: A0780791A

PATIENT
  Age: 62 Year
  Sex: Male
  Weight: 90.9 kg

DRUGS (13)
  1. FLUTICASONE PROPIONATE [Suspect]
     Indication: MULTIPLE ALLERGIES
     Dosage: 2SPR AS REQUIRED
     Route: 045
     Dates: start: 20081201, end: 20090420
  2. BACTROBAN [Concomitant]
  3. ASPIRIN [Concomitant]
     Dosage: 81MG PER DAY
  4. ALLEGRA [Concomitant]
     Dosage: 180MG PER DAY
  5. TEGRETOL [Concomitant]
     Dosage: 200MG FIVE TIMES PER DAY
  6. NEURONTIN [Concomitant]
     Dosage: 1200MG FIVE TIMES PER DAY
  7. ULTRAM [Concomitant]
     Dosage: 100MG FOUR TIMES PER DAY
  8. LIDOCAINE [Concomitant]
  9. LISINOPRIL AND HYDROCHLOROTHIAZIDE [Concomitant]
  10. LIPITOR [Concomitant]
  11. FLOMAX [Concomitant]
  12. PREVACID [Concomitant]
  13. NABUMETONE [Concomitant]
     Dosage: 750MG TWICE PER DAY

REACTIONS (2)
  - BURNING SENSATION [None]
  - RESPIRATORY TRACT IRRITATION [None]
